FAERS Safety Report 10879071 (Version 1)
Quarter: 2015Q1

REPORT INFORMATION
  Report Type: Spontaneous
  Country: None (occurrence: None)
  Receive Date: 20150224
  Receipt Date: 20150224
  Transmission Date: 20150721
  Serious: No
  Sender: FDA-Public Use
  Company Number: None

PATIENT
  Sex: Female

DRUGS (1)
  1. PLEGRIDY [Suspect]
     Active Substance: PEGINTERFERON BETA-1A
     Dosage: 125 MCG, EVERY 14 DAYS
     Route: 058

REACTIONS (1)
  - Injection site erythema [None]

NARRATIVE: CASE EVENT DATE: 20150223
